FAERS Safety Report 22024057 (Version 1)
Quarter: 2023Q1

REPORT INFORMATION
  Report Type: Spontaneous
  Country: FR (occurrence: FR)
  Receive Date: 20230223
  Receipt Date: 20230223
  Transmission Date: 20230418
  Serious: Yes (Hospitalization)
  Sender: FDA-Public Use
  Company Number: None

PATIENT
  Age: 73 Year
  Sex: Male

DRUGS (13)
  1. HYDROXYUREA [Suspect]
     Active Substance: HYDROXYUREA
     Indication: Polycythaemia vera
     Dosage: DAILY DOSE: 500 MILLIGRAM
     Route: 048
     Dates: start: 20190207, end: 20190302
  2. LANTUS [Concomitant]
     Active Substance: INSULIN GLARGINE
  3. NOVORAPID [Concomitant]
     Active Substance: INSULIN ASPART
  4. ATORVASTATIN [Concomitant]
     Active Substance: ATORVASTATIN
  5. PERINDOPRIL [Concomitant]
     Active Substance: PERINDOPRIL
  6. ACEBUTOLOL [Concomitant]
     Active Substance: ACEBUTOLOL
  7. KARDEGIC [Concomitant]
     Active Substance: ASPIRIN DL-LYSINE
     Dosage: DAILY DOSE: 75 MILLIGRAM
  8. PANTOPRAZOLE [Concomitant]
     Active Substance: PANTOPRAZOLE
  9. ALFUZOSIN [Concomitant]
     Active Substance: ALFUZOSIN
  10. ACETAMINOPHEN [Concomitant]
     Active Substance: ACETAMINOPHEN
  11. BRINZOLAMIDE [Concomitant]
     Active Substance: BRINZOLAMIDE
  12. LATANOPROST [Concomitant]
     Active Substance: LATANOPROST
  13. RUXOLITINIB [Concomitant]
     Active Substance: RUXOLITINIB
     Dosage: 14-MAR-2019: INTRODUCTION OF 2ND LINE TREATMENT WITH JAKAVI (RUXOLITINIB) 10 MG X2/D

REACTIONS (1)
  - Bronchopneumopathy [Recovered/Resolved]

NARRATIVE: CASE EVENT DATE: 20190302
